FAERS Safety Report 24703003 (Version 1)
Quarter: 2024Q4

REPORT INFORMATION
  Report Type: Spontaneous
  Country: US (occurrence: US)
  Receive Date: 20241205
  Receipt Date: 20241205
  Transmission Date: 20250115
  Serious: Yes (Hospitalization)
  Sender: ALKERMES
  Company Number: US-ALKERMES INC.-ALK-2024-003065

PATIENT
  Sex: Female
  Weight: 73.469 kg

DRUGS (8)
  1. VIVITROL [Suspect]
     Active Substance: NALTREXONE
     Indication: Alcoholism
     Dosage: 380 MILLIGRAM, QMO
     Route: 030
     Dates: start: 2023
  2. VIVITROL [Suspect]
     Active Substance: NALTREXONE
     Dosage: 380 MILLIGRAM, QMO, 1 DOSE
     Route: 030
     Dates: start: 2010, end: 2010
  3. MORPHINE [Suspect]
     Active Substance: MORPHINE
     Indication: Pain in extremity
     Dosage: UNK
  4. IBUPROFEN [Suspect]
     Active Substance: IBUPROFEN
     Indication: Pain in extremity
     Dosage: 800 MILLIGRAM
     Route: 065
  5. ZYRTEC [Concomitant]
     Active Substance: CETIRIZINE HYDROCHLORIDE
     Indication: Product used for unknown indication
     Dosage: UNK
     Route: 065
  6. UNSPECIFIED INGREDIENT [Concomitant]
     Active Substance: UNSPECIFIED INGREDIENT
     Indication: Asthma
     Dosage: UNK
  7. UNSPECIFIED INGREDIENT [Concomitant]
     Active Substance: UNSPECIFIED INGREDIENT
     Indication: Product used for unknown indication
     Dosage: UNK
     Route: 065
  8. KLONOPIN [Concomitant]
     Active Substance: CLONAZEPAM
     Indication: Product used for unknown indication
     Dosage: UNK
     Route: 065

REACTIONS (30)
  - Hypoxia [Unknown]
  - Panic attack [Unknown]
  - Hypoacusis [Unknown]
  - Therapeutic response shortened [Unknown]
  - Contraindicated product administered [Unknown]
  - Nightmare [Unknown]
  - Hypersomnia [Unknown]
  - Eye swelling [Unknown]
  - Heart rate increased [Unknown]
  - Blood pressure diastolic increased [Unknown]
  - Restlessness [Unknown]
  - Injection site mass [Unknown]
  - Injection site pain [Unknown]
  - Pain in extremity [Unknown]
  - Palpitations [Unknown]
  - Vision blurred [Unknown]
  - Chest pain [Unknown]
  - Alcoholism [Unknown]
  - Back pain [Unknown]
  - Insomnia [Unknown]
  - Headache [Unknown]
  - Abdominal pain upper [Unknown]
  - Dizziness [Unknown]
  - Vomiting [Unknown]
  - Aggression [Unknown]
  - Stress [Unknown]
  - Tongue discomfort [Unknown]
  - Throat irritation [Unknown]
  - Skin burning sensation [Unknown]
  - Yawning [Unknown]

NARRATIVE: CASE EVENT DATE: 20100101
